FAERS Safety Report 8193562-2 (Version None)
Quarter: 2012Q1

REPORT INFORMATION
  Report Type: 
  Country: None (occurrence: None)
  Receive Date: 20120308
  Receipt Date: 20120307
  Transmission Date: 20120608
  Serious: Yes (Hospitalization)
  Sender: FDA-Public Use
  Company Number: FR-ROCHE-1030761

PATIENT
  Sex: Female

DRUGS (10)
  1. HERCEPTIN [Suspect]
     Dates: start: 20120214, end: 20120214
  2. TAXOTERE [Suspect]
     Indication: BREAST CANCER
     Route: 042
     Dates: start: 20111125, end: 20111125
  3. DESLORATADINE [Concomitant]
     Indication: ASTHMA
     Route: 048
  4. HERCEPTIN [Suspect]
     Indication: BREAST CANCER
     Dosage: REPORTED AS: HERCEPTIN 150 MG
     Route: 042
     Dates: start: 20111125, end: 20111125
  5. HERCEPTIN [Suspect]
     Dates: start: 20120125, end: 20120125
  6. HERCEPTIN [Suspect]
     Dates: start: 20120104, end: 20120104
  7. PRAZEPAM [Concomitant]
     Route: 048
  8. VITAMIN D [Concomitant]
     Route: 048
  9. FLUTICASONE PROPIONATE/SALMETEROL [Concomitant]
     Indication: ASTHMA
     Route: 055
  10. VENTOLIN [Concomitant]
     Indication: ASTHMA
     Route: 055

REACTIONS (1)
  - INTESTINAL OBSTRUCTION [None]
